FAERS Safety Report 4596256-5 (Version None)
Quarter: 2005Q1

REPORT INFORMATION
  Report Type: 
  Country: None (occurrence: None)
  Receive Date: 20050302
  Receipt Date: 20050221
  Transmission Date: 20050727
  Serious: Yes (Death)
  Sender: FDA-Public Use
  Company Number: JP-JNJFOC-20040102166

PATIENT
  Sex: Female

DRUGS (2)
  1. DUROTEP [Suspect]
     Route: 062
  2. DUROTEP [Suspect]
     Indication: CANCER PAIN
     Route: 062

REACTIONS (1)
  - GASTRIC CANCER [None]
